FAERS Safety Report 10738811 (Version 4)
Quarter: 2016Q4

REPORT INFORMATION
  Report Type: Spontaneous
  Country: US (occurrence: US)
  Receive Date: 20150126
  Receipt Date: 20161121
  Transmission Date: 20170206
  Serious: Yes (Death, Other)
  Sender: FDA-Public Use
  Company Number: US-GLAXOSMITHKLINE-US2014GSK048318

PATIENT
  Sex: Female

DRUGS (1)
  1. VENTOLIN HFA [Suspect]
     Active Substance: ALBUTEROL SULFATE
     Indication: BRONCHITIS CHRONIC
     Dosage: UNK
     Dates: start: 1988

REACTIONS (2)
  - Malaise [Unknown]
  - Death [Fatal]
